FAERS Safety Report 20569572 (Version 2)
Quarter: 2022Q2

REPORT INFORMATION
  Report Type: Report from Study
  Country: GB (occurrence: GB)
  Receive Date: 20220309
  Receipt Date: 20220401
  Transmission Date: 20220721
  Serious: Yes (Other)
  Sender: FDA-Public Use
  Company Number: GB-NOVOPROD-895521

PATIENT
  Age: 63 Year
  Sex: Female
  Weight: 95 kg

DRUGS (8)
  1. SEMAGLUTIDE [Suspect]
     Active Substance: SEMAGLUTIDE
     Indication: Type 2 diabetes mellitus
     Dosage: 14 MG, QD
     Route: 048
     Dates: start: 20200822, end: 20220228
  2. ASPIRIN [Concomitant]
     Active Substance: ASPIRIN
     Dosage: 75.0,MG,
     Dates: start: 20191216
  3. ATORVASTATIN [Concomitant]
     Active Substance: ATORVASTATIN
     Dosage: 80.0,MG,
     Dates: start: 20191216
  4. BISOPROLOL [Concomitant]
     Active Substance: BISOPROLOL
     Dosage: 7.5,MG,
     Dates: start: 20191216
  5. FUROSEMIDE [Concomitant]
     Active Substance: FUROSEMIDE
     Dosage: 40.0,MG,
     Dates: start: 20191216
  6. LOSARTAN [Concomitant]
     Active Substance: LOSARTAN
     Dosage: 100.0,MG,
     Dates: start: 20191216
  7. DAPAGLIFLOZIN [Concomitant]
     Active Substance: DAPAGLIFLOZIN
     Dosage: 10.0,MG,
     Dates: start: 20200918
  8. INSULIN ASPART [Concomitant]
     Active Substance: INSULIN ASPART
     Dosage: 66.0,U,
     Dates: start: 20201029

REACTIONS (1)
  - Cholelithiasis [Not Recovered/Not Resolved]

NARRATIVE: CASE EVENT DATE: 20220225
